FAERS Safety Report 6691872-9 (Version None)
Quarter: 2010Q2

REPORT INFORMATION
  Report Type: 
  Country: None (occurrence: None)
  Receive Date: 20100422
  Receipt Date: 20100415
  Transmission Date: 20101027
  Serious: Yes (Hospitalization)
  Sender: FDA-Public Use
  Company Number: GB-JNJFOC-20090400410

PATIENT
  Age: 16 Year
  Sex: Male

DRUGS (4)
  1. PARACETAMOL [Suspect]
  2. PARACETAMOL [Suspect]
     Indication: DRUG USE FOR UNKNOWN INDICATION
  3. FLECAINIDE [Suspect]
     Indication: INTENTIONAL OVERDOSE
  4. CODEINE [Suspect]
     Indication: DRUG USE FOR UNKNOWN INDICATION

REACTIONS (5)
  - CHEST DISCOMFORT [None]
  - DEPRESSED LEVEL OF CONSCIOUSNESS [None]
  - ELECTROCARDIOGRAM CHANGE [None]
  - MULTIPLE DRUG OVERDOSE INTENTIONAL [None]
  - VOMITING [None]
